FAERS Safety Report 10818497 (Version 1)
Quarter: 2015Q1

REPORT INFORMATION
  Report Type: Spontaneous
  Country: None (occurrence: US)
  Receive Date: 20150218
  Receipt Date: 20150218
  Transmission Date: 20150721
  Serious: Yes (Hospitalization)
  Sender: FDA-Public Use
  Company Number: US-ALLERGAN-1502455US

PATIENT
  Sex: Female

DRUGS (1)
  1. AZELEX [Suspect]
     Active Substance: AZELAIC ACID
     Indication: ACNE

REACTIONS (4)
  - Rash pustular [Unknown]
  - Haemorrhage [Unknown]
  - Erythema [Unknown]
  - Rash [Unknown]
